FAERS Safety Report 6402141-6 (Version None)
Quarter: 2009Q4

REPORT INFORMATION
  Report Type: 
  Country: None (occurrence: None)
  Receive Date: 20091014
  Receipt Date: 20091014
  Transmission Date: 20100525
  Serious: Yes (Life-Threatening, Hospitalization, Other)
  Sender: FDA-Public Use
  Company Number: None

PATIENT
  Sex: Male
  Weight: 80.2867 kg

DRUGS (3)
  1. ZOLPIDEM TARTRATE [Suspect]
     Indication: FATIGUE
     Dosage: 10 MG @ NIGHT (1) 1 PER PM
     Dates: start: 20090914, end: 20090927
  2. ZOLPIDEM TARTRATE [Suspect]
     Indication: INSOMNIA
     Dosage: 10 MG @ NIGHT (1) 1 PER PM
     Dates: start: 20090914, end: 20090927
  3. CYMBALTA [Suspect]
     Indication: DEPRESSION
     Dosage: 30 MG. AM (1) (1 PER AM FOR 1 WK.) - 60 STARTING 2ND WK
     Dates: start: 20090922

REACTIONS (3)
  - DEPRESSION [None]
  - POTENTIATING DRUG INTERACTION [None]
  - SUICIDE ATTEMPT [None]
